FAERS Safety Report 14256449 (Version 1)
Quarter: 2017Q4

REPORT INFORMATION
  Report Type: Report from Study
  Country: FR (occurrence: FR)
  Receive Date: 20171206
  Receipt Date: 20171206
  Transmission Date: 20180321
  Serious: Yes (Hospitalization, Other)
  Sender: FDA-Public Use
  Company Number: FR-PFIZER INC-2016255372

PATIENT
  Age: 63 Year
  Sex: Male
  Weight: 82 kg

DRUGS (20)
  1. MYLOTARG [Suspect]
     Active Substance: GEMTUZUMAB OZOGAMICIN
     Dosage: 5 MG, UNK
     Route: 042
     Dates: start: 20160330, end: 20160330
  2. DAUNORUBICINE [Suspect]
     Active Substance: DAUNORUBICIN
     Indication: ACUTE MYELOID LEUKAEMIA
     Dosage: 120 MG, CYCLIC, DAY 1, DAY2, DAY3
     Route: 041
     Dates: start: 20160326
  3. ARACYTINE [Suspect]
     Active Substance: CYTARABINE
     Indication: ACUTE MYELOID LEUKAEMIA
     Dosage: 400 MG, DAILY FROM  DAY 1 TO DAY 7
     Route: 041
     Dates: start: 20160326
  4. AMLOR [Concomitant]
     Active Substance: AMLODIPINE BESYLATE
     Dosage: 5 MG, 1X/DAY
     Route: 048
  5. NOXAFIL [Suspect]
     Active Substance: POSACONAZOLE
     Indication: ANTIFUNGAL PROPHYLAXIS
     Dosage: 300 MG, DAILY
  6. CLAMOXYL /00249601/ [Suspect]
     Active Substance: AMOXICILLIN
     Indication: ANTIBIOTIC PROPHYLAXIS
     Dosage: UNK
  7. LOXEN /00639802/ [Concomitant]
     Active Substance: NICARDIPINE HYDROCHLORIDE
     Dosage: 20 MG, DAILY
     Route: 048
  8. ARACYTINE [Suspect]
     Active Substance: CYTARABINE
     Dosage: 1900 MG, EVERY 12 HOURS , CONSOLIDATION 1
     Route: 042
     Dates: start: 20160512, end: 20160515
  9. XATRAL [Concomitant]
     Active Substance: ALFUZOSIN
     Dosage: 2.5 MG, DAILY
     Route: 048
  10. PERMIXON [Concomitant]
     Active Substance: HERBALS\SAW PALMETTO
     Dosage: 160 MG, 2X/DAY
     Route: 048
  11. COLCHICINE. [Concomitant]
     Active Substance: COLCHICINE
     Indication: GOUT
     Dosage: 1 MG, 1X/DAY
     Route: 048
  12. ACEBUTOLOL /00405702/ [Concomitant]
     Active Substance: ACEBUTOLOL
     Dosage: 200 MG, DAILY, 0.5 DF MORNING AND EVENING
     Route: 048
  13. PARACETAMOL [Concomitant]
     Active Substance: ACETAMINOPHEN
     Dosage: 1 G, UP TO 4 DAILY IF NEEDED
     Route: 048
  14. MYLOTARG [Suspect]
     Active Substance: GEMTUZUMAB OZOGAMICIN
     Indication: ACUTE MYELOID LEUKAEMIA
     Dosage: 5 MG, CYCLIC ON DAY 1, DAY 4 AND DAY 7
     Route: 041
     Dates: start: 20160326
  15. MYLOTARG [Suspect]
     Active Substance: GEMTUZUMAB OZOGAMICIN
     Dosage: 5 MG, SINGLE, CONSOLIDATION 1
     Route: 042
     Dates: start: 20160512, end: 20160512
  16. ONDANSETRON [Concomitant]
     Active Substance: ONDANSETRON
     Dosage: 8 MG, DAILY
     Route: 042
     Dates: start: 20160512, end: 20160515
  17. DAUNORUBICINE [Suspect]
     Active Substance: DAUNORUBICIN
     Dosage: 115 MG, SINGLE, CONSOLIDATION 1
     Route: 042
     Dates: start: 20160512
  18. SIMVASTATINE [Concomitant]
     Active Substance: SIMVASTATIN
     Dosage: 10 MG, 1X/DAY
     Route: 048
  19. TOPALGIC (TRAMADOL HYDROCHLORIDE) [Concomitant]
     Active Substance: TRAMADOL HYDROCHLORIDE
     Dosage: 50 MG, 3 DF DAILY IF NEEDED
     Route: 048
  20. STILNOX [Concomitant]
     Active Substance: ZOLPIDEM TARTRATE
     Indication: INSOMNIA
     Dosage: 10 MG, IN EVENING IF INSOMNIA
     Route: 048

REACTIONS (8)
  - Staphylococcal sepsis [Recovering/Resolving]
  - Enterobacter sepsis [Recovering/Resolving]
  - Febrile bone marrow aplasia [Recovered/Resolved]
  - Thrombocytopenia [Recovering/Resolving]
  - Leukopenia [Unknown]
  - Neutropenia [Unknown]
  - Anaemia [Unknown]
  - Alanine aminotransferase increased [Unknown]

NARRATIVE: CASE EVENT DATE: 2016
